FAERS Safety Report 9821732 (Version 2)
Quarter: 2014Q1

REPORT INFORMATION
  Report Type: Spontaneous
  Country: US (occurrence: US)
  Receive Date: 20140116
  Receipt Date: 20140207
  Transmission Date: 20141002
  Serious: No
  Sender: FDA-Public Use
  Company Number: US-PFIZER INC-2014013219

PATIENT
  Age: 75 Year
  Sex: Female

DRUGS (5)
  1. LOPID [Suspect]
     Indication: BLOOD TRIGLYCERIDES INCREASED
     Dosage: 600 MG, 2X/DAY (600 MG BID)
     Route: 048
     Dates: start: 200801, end: 200806
  2. NOVOCAINE [Suspect]
     Dosage: UNK
  3. TETANUS TOXOID [Suspect]
     Dosage: UNK
  4. TRICOR [Suspect]
     Dosage: UNK
  5. AMLODIPINE [Concomitant]
     Indication: HYPERTENSION
     Dosage: 10 MG, 1X/DAY

REACTIONS (2)
  - Drug hypersensitivity [Unknown]
  - Constipation [Recovered/Resolved]
